FAERS Safety Report 5654933-9 (Version None)
Quarter: 2008Q1

REPORT INFORMATION
  Report Type: 
  Country: None (occurrence: None)
  Receive Date: 20080307
  Receipt Date: 20071001
  Transmission Date: 20080703
  Serious: No
  Sender: FDA-Public Use
  Company Number: A0681845A

PATIENT
  Age: 59 Year
  Sex: Male
  Weight: 138.6 kg

DRUGS (1)
  1. REQUIP [Suspect]
     Indication: RESTLESS LEGS SYNDROME
     Dosage: 1MG PER DAY
     Route: 048
     Dates: start: 20070817, end: 20070909

REACTIONS (4)
  - OEDEMA PERIPHERAL [None]
  - PAIN IN EXTREMITY [None]
  - PITTING OEDEMA [None]
  - WEIGHT INCREASED [None]
